FAERS Safety Report 23584783 (Version 1)
Quarter: 2024Q1

REPORT INFORMATION
  Report Type: Spontaneous
  Country: CA (occurrence: CA)
  Receive Date: 20240301
  Receipt Date: 20240301
  Transmission Date: 20240410
  Serious: Yes (Life-Threatening)
  Sender: FDA-Public Use
  Company Number: CA-TEVA-VS-3161870

PATIENT
  Age: 78 Year
  Sex: Male

DRUGS (7)
  1. TRANDOLAPRIL [Suspect]
     Active Substance: TRANDOLAPRIL
     Indication: Hypertension
     Route: 048
  2. AMLODIPINE [Concomitant]
     Active Substance: AMLODIPINE BESYLATE
     Route: 065
  3. ASPIRIN [Concomitant]
     Active Substance: ASPIRIN
     Dosage: DOSE FORM: NOT SPECIFIED
     Route: 065
  4. ATIVAN [Concomitant]
     Active Substance: LORAZEPAM
     Dosage: DOSE FORM: NOT SPECIFIED
     Route: 065
  5. ROSUVASTATIN [Concomitant]
     Active Substance: ROSUVASTATIN
     Route: 065
  6. VITAMIN B12 [Concomitant]
     Active Substance: CYANOCOBALAMIN
     Dosage: DOSE FORM: NOT SPECIFIED
     Route: 065
  7. VITAMIN D [Concomitant]
     Active Substance: VITAMIN D NOS
     Dosage: DOSE FORM; NOT SPECIFIED
     Route: 065

REACTIONS (2)
  - Endotracheal intubation [Recovering/Resolving]
  - Angioedema [Recovering/Resolving]
